FAERS Safety Report 11838392 (Version 3)
Quarter: 2016Q1

REPORT INFORMATION
  Report Type: Report from Study
  Country: US (occurrence: US)
  Receive Date: 20151215
  Receipt Date: 20160218
  Transmission Date: 20160525
  Serious: Yes (Death, Hospitalization, Other)
  Sender: FDA-Public Use
  Company Number: US-B.I. PHARMACEUTICALS,INC./RIDGEFIELD-2015-BI-69313BP

PATIENT
  Sex: Male

DRUGS (1)
  1. OFEV [Suspect]
     Active Substance: NINTEDANIB
     Indication: IDIOPATHIC PULMONARY FIBROSIS
     Dosage: 200 MG
     Route: 048
     Dates: start: 20151104

REACTIONS (7)
  - Sepsis [Unknown]
  - Chronic obstructive pulmonary disease [Fatal]
  - Oxygen saturation decreased [Unknown]
  - Diabetes mellitus [Fatal]
  - Atrial fibrillation [Unknown]
  - Pneumonia [Unknown]
  - Idiopathic pulmonary fibrosis [Fatal]
